FAERS Safety Report 4974762-9 (Version None)
Quarter: 2006Q2

REPORT INFORMATION
  Report Type: 
  Country: None (occurrence: None)
  Receive Date: 20060410
  Receipt Date: 20060330
  Transmission Date: 20061013
  Serious: Yes (Other)
  Sender: FDA-Public Use
  Company Number: AU-GDP-0612901

PATIENT
  Age: 82 Year
  Sex: Female

DRUGS (5)
  1. ROZEX [Suspect]
     Indication: RASH PUSTULAR
     Dosage: 1 APP BID TP
     Route: 061
     Dates: start: 20030301
  2. ROZEX [Suspect]
     Indication: ROSACEA
     Dosage: 1 APP BID TP
     Route: 061
     Dates: start: 20030301
  3. AVAPRO [Concomitant]
  4. TRITACE [Concomitant]
  5. DIAPHORMIN [Concomitant]

REACTIONS (1)
  - SKIN CANCER [None]
